FAERS Safety Report 20017294 (Version 2)
Quarter: 2021Q4

REPORT INFORMATION
  Report Type: Spontaneous
  Country: GB (occurrence: GB)
  Receive Date: 20211030
  Receipt Date: 20211108
  Transmission Date: 20220303
  Serious: Yes (Hospitalization, Other)
  Sender: FDA-Public Use
  Company Number: GB-SAMSUNG BIOEPIS-SB-2021-25325

PATIENT
  Age: 82 Year
  Sex: Male

DRUGS (1)
  1. ETANERCEPT [Suspect]
     Active Substance: ETANERCEPT
     Indication: Rheumatoid arthritis
     Dosage: UNKNOWN
     Route: 065

REACTIONS (8)
  - Urinary tract infection [Unknown]
  - Fall [Unknown]
  - Renal impairment [Unknown]
  - Asthenia [Unknown]
  - Gait disturbance [Unknown]
  - Dehydration [Unknown]
  - Electrocardiogram abnormal [Unknown]
  - Ill-defined disorder [Unknown]
